FAERS Safety Report 11895078 (Version 1)
Quarter: 2016Q1

REPORT INFORMATION
  Report Type: Spontaneous
  Country: US (occurrence: None)
  Receive Date: 20160106
  Receipt Date: 20160106
  Transmission Date: 20160526
  Serious: Yes (Other)
  Sender: FDA-Public Use
  Company Number: None

PATIENT
  Age: 34 Year
  Sex: Female
  Weight: 54.43 kg

DRUGS (10)
  1. EQUATE COUGH DM [Suspect]
     Active Substance: DEXTROMETHORPHAN HYDROBROMIDE
     Indication: COUGH
     Route: 048
     Dates: start: 20160105, end: 20160105
  2. LICORICE ROOT [Concomitant]
  3. ORTHOMOLECULAR PREGNENALONE [Concomitant]
  4. INTEGRATIVE TECHNOLOGIES GLUCOSE SUPPORT [Concomitant]
  5. FISH OIL [Concomitant]
     Active Substance: FISH OIL
  6. MAGNESIUM SUPPLEMENT [Concomitant]
  7. DEVA VEGAN VITAMIN C [Concomitant]
  8. ORTHOMOLECULAR ADAPTEN-ALL [Concomitant]
  9. ORTHOMOLECULAR DHEA [Concomitant]
  10. DEVA VEGAN DAILY VITAMINS WITH GREENS [Concomitant]

REACTIONS (3)
  - Fear [None]
  - Heart rate increased [None]
  - Presyncope [None]

NARRATIVE: CASE EVENT DATE: 20160105
